FAERS Safety Report 5035809-7 (Version None)
Quarter: 2006Q2

REPORT INFORMATION
  Report Type: 
  Country: None (occurrence: None)
  Receive Date: 20060622
  Receipt Date: 20060612
  Transmission Date: 20061013
  Serious: Yes (Hospitalization)
  Sender: FDA-Public Use
  Company Number: 2006-05-0066

PATIENT
  Age: 66 Year
  Sex: Female
  Weight: 55.3388 kg

DRUGS (12)
  1. PEG-INTRON [Suspect]
     Indication: HEPATITIS C
     Dosage: 80 MCG QWK SUBCUTANEOUS
     Route: 058
     Dates: start: 20060303, end: 20060401
  2. RIBAVIRIN [Suspect]
     Indication: HEPATITIS C
     Dosage: 400 MG BID ORAL
     Route: 048
     Dates: start: 20060303, end: 20060401
  3. DURAGESIC-100 [Suspect]
     Dosage: 15 MG Q72H
     Dates: start: 20060402, end: 20060412
  4. ALPRAZOLAM [Concomitant]
  5. PROMETHAZINE DM SYRUP [Concomitant]
  6. FUROSEMIDE [Concomitant]
  7. POTASSIUM CHLORIDE [Concomitant]
  8. AMITRIPTYLINE HCL [Concomitant]
  9. TRAZODONE HCL [Concomitant]
  10. PROZAC [Concomitant]
  11. PROCRIT [Concomitant]
  12. BENADRYL [Concomitant]

REACTIONS (5)
  - BONE MARROW FAILURE [None]
  - CONFUSIONAL STATE [None]
  - DRUG HYPERSENSITIVITY [None]
  - DYSARTHRIA [None]
  - MENTAL STATUS CHANGES [None]
